FAERS Safety Report 10149250 (Version 1)
Quarter: 2014Q2

REPORT INFORMATION
  Report Type: Spontaneous
  Country: US (occurrence: None)
  Receive Date: 20140501
  Receipt Date: 20140501
  Transmission Date: 20141212
  Serious: Yes (Other)
  Sender: FDA-Public Use
  Company Number: None

PATIENT
  Age: 34 Year
  Sex: Female
  Weight: 92.53 kg

DRUGS (1)
  1. LAMICTAL 100MG [Suspect]
     Indication: CONVULSION
     Route: 048
     Dates: end: 20101001

REACTIONS (2)
  - Anxiety [None]
  - Tachyphrenia [None]
